FAERS Safety Report 9803961 (Version 2)
Quarter: 2014Q1

REPORT INFORMATION
  Report Type: Spontaneous
  Country: FR (occurrence: None)
  Receive Date: 20140103
  Receipt Date: 20140307
  Transmission Date: 20141002
  Serious: Yes (Hospitalization)
  Sender: FDA-Public Use
  Company Number: SYM-2013-14389

PATIENT
  Age: 62 Year
  Sex: Male

DRUGS (7)
  1. MONO-TILDIEM [Suspect]
     Indication: PRODUCT USED FOR UNKNOWN INDICATION
     Dosage: 300MG, DAILY ORAL
     Route: 048
     Dates: start: 20130728, end: 20131114
  2. MONO-TILDIEM [Suspect]
     Indication: SUPRAVENTRICULAR TACHYCARDIA
     Dosage: 300MG, DAILY ORAL
     Route: 048
     Dates: start: 20130728, end: 20131114
  3. CORTANCYL (PREDNISONE) (PREDNISONE) [Concomitant]
  4. BARACLUDE (ENTECAVIR) (ENTECAVIR) [Concomitant]
  5. HYDROCHLOROTHIAZIDE/LOSARTAN POTASSIUM(HYDROCHLOROTHIAZIDE W/LOSARTAN)(HYDROCHLOROTHIAZIDE, LOSARTAN) [Concomitant]
  6. ATORVASTATIN (ATORVASTATIN) (ATORVASTATIN) [Concomitant]
  7. CLOPIDOGREL (CLOPIDOGREL) (CLOPIDOGREL) [Concomitant]

REACTIONS (3)
  - Alveolitis [None]
  - Dyspnoea [None]
  - Insomnia [None]
